FAERS Safety Report 26155883 (Version 1)
Quarter: 2025Q4

REPORT INFORMATION
  Report Type: Report from Study
  Country: GB (occurrence: GB)
  Receive Date: 20251215
  Receipt Date: 20251215
  Transmission Date: 20260117
  Serious: Yes (Other)
  Sender: AMGEN
  Company Number: GB-AMGEN-GBRSL2025246279

PATIENT
  Sex: Female

DRUGS (1)
  1. ADALIMUMAB [Suspect]
     Active Substance: ADALIMUMAB
     Indication: Polyarthritis
     Dosage: 40 MILLIGRAM, Q2WK
     Route: 065

REACTIONS (2)
  - Breast cancer [Unknown]
  - Off label use [Unknown]
